FAERS Safety Report 8243196-6 (Version None)
Quarter: 2012Q1

REPORT INFORMATION
  Report Type: 
  Country: None (occurrence: None)
  Receive Date: 20120329
  Receipt Date: 20120315
  Transmission Date: 20120608
  Serious: Yes (Other)
  Sender: FDA-Public Use
  Company Number: US-MYLANLABS-2012S1006030

PATIENT
  Age: 49 Year
  Sex: Female

DRUGS (2)
  1. CYCLOPHOSPHAMIDE [Suspect]
     Indication: BREAST CANCER
     Route: 065
  2. FLUOROURACIL [Suspect]
     Indication: BREAST CANCER
     Route: 065

REACTIONS (1)
  - PSEUDOMEMBRANOUS COLITIS [None]
